FAERS Safety Report 7018445-2 (Version None)
Quarter: 2010Q3

REPORT INFORMATION
  Report Type: 
  Country: None (occurrence: None)
  Receive Date: 20100924
  Receipt Date: 20100908
  Transmission Date: 20110219
  Serious: Yes (Other)
  Sender: FDA-Public Use
  Company Number: 2007S1006872

PATIENT
  Age: 49 Year
  Sex: Female
  Weight: 81.6475 kg

DRUGS (7)
  1. PHOSPHOSODA FLAVOR NOT SPECIFIED [Suspect]
     Indication: SURGERY
     Dosage: X1; PO
     Route: 048
     Dates: start: 20050919, end: 20050919
  2. AMBIEN [Concomitant]
  3. NAPROXEN [Concomitant]
  4. VICODIN [Concomitant]
  5. PRILOSEC [Concomitant]
  6. PAXIL [Concomitant]
  7. PREMARIN [Concomitant]

REACTIONS (2)
  - ACUTE PHOSPHATE NEPHROPATHY [None]
  - RENAL FAILURE CHRONIC [None]
